FAERS Safety Report 22619438 (Version 1)
Quarter: 2023Q2

REPORT INFORMATION
  Report Type: Spontaneous
  Country: US (occurrence: US)
  Receive Date: 20230620
  Receipt Date: 20230620
  Transmission Date: 20230722
  Serious: No
  Sender: FDA-Public Use
  Company Number: US-TAKEDA-2023TUS056578

PATIENT
  Sex: Male
  Weight: 111.11 kg

DRUGS (1)
  1. LIALDA [Suspect]
     Active Substance: MESALAMINE
     Indication: Proctitis ulcerative
     Dosage: 3.6 GRAM, QD
     Route: 065
     Dates: start: 202212

REACTIONS (3)
  - Product residue present [Unknown]
  - Product quality issue [Unknown]
  - Product availability issue [Unknown]
